FAERS Safety Report 23867794 (Version 2)
Quarter: 2024Q2

REPORT INFORMATION
  Report Type: Spontaneous
  Country: JP (occurrence: JP)
  Receive Date: 20240517
  Receipt Date: 20240617
  Transmission Date: 20240715
  Serious: Yes (Hospitalization)
  Sender: FDA-Public Use
  Company Number: JP-DSJP-DSJ-2024-120597

PATIENT
  Age: 65 Year
  Sex: Male
  Weight: 52.4 kg

DRUGS (8)
  1. EDOXABAN TOSYLATE [Suspect]
     Active Substance: EDOXABAN TOSYLATE
     Indication: Atrial fibrillation
     Dosage: 30 MG, QD
     Route: 048
     Dates: start: 20230412, end: 20231110
  2. BISOPROLOL FUMARATE [Concomitant]
     Active Substance: BISOPROLOL FUMARATE
     Indication: Atrial fibrillation
     Dosage: 1.25 MG, QD
     Route: 048
     Dates: start: 20230412, end: 20231110
  3. LANSOPRAZOLE [Concomitant]
     Active Substance: LANSOPRAZOLE
     Indication: Gastric ulcer
     Dosage: 15 MG, QD
     Route: 048
     Dates: start: 20230412, end: 20231110
  4. PREDONINE [Concomitant]
     Active Substance: PREDNISOLONE
     Indication: Vasculitis
     Dosage: 15 MG, BID
     Route: 048
     Dates: start: 20231013, end: 20231110
  5. LOXOPROFEN [Concomitant]
     Active Substance: LOXOPROFEN
     Indication: Skin ulcer
     Dosage: 60 MG, TID
     Route: 048
     Dates: start: 20231025, end: 20231110
  6. REBAMIPIDE [Concomitant]
     Active Substance: REBAMIPIDE
     Indication: Gastric ulcer
     Dosage: 100 MG, TID
     Route: 048
     Dates: start: 20231025, end: 20231110
  7. ALENDRONATE [Concomitant]
     Active Substance: ALENDRONATE SODIUM
     Indication: Osteoporosis prophylaxis
     Dosage: 35 MG, ONCE EVERY 1 WK
     Route: 048
     Dates: start: 20231025, end: 20231110
  8. LOXOPROFEN SODIUM [Concomitant]
     Active Substance: LOXOPROFEN SODIUM
     Indication: Skin ulcer
     Dosage: 100 MG, QD
     Route: 061
     Dates: start: 20231025, end: 20231110

REACTIONS (2)
  - Haematemesis [Recovering/Resolving]
  - Aortic aneurysm rupture [Unknown]

NARRATIVE: CASE EVENT DATE: 20231110
